FAERS Safety Report 17753089 (Version 1)
Quarter: 2020Q2

REPORT INFORMATION
  Report Type: Spontaneous
  Country: US (occurrence: US)
  Receive Date: 20200506
  Receipt Date: 20200506
  Transmission Date: 20200714
  Serious: No
  Sender: FDA-Public Use
  Company Number: US-ROCHE-2400129

PATIENT
  Age: 80 Year
  Sex: Male

DRUGS (1)
  1. ESBRIET [Suspect]
     Active Substance: PIRFENIDONE
     Indication: PRODUCT USED FOR UNKNOWN INDICATION
     Route: 065
     Dates: start: 20190306

REACTIONS (3)
  - Asthenia [Unknown]
  - Weight decreased [Unknown]
  - Decreased appetite [Unknown]

NARRATIVE: CASE EVENT DATE: 20190306
